FAERS Safety Report 8781037 (Version 3)
Quarter: 2012Q4

REPORT INFORMATION
  Report Type: 
  Country: JP (occurrence: JP)
  Receive Date: 20120913
  Receipt Date: 20120914
  Transmission Date: 20130627
  Serious: Yes (Other)
  Sender: FDA-Public Use
  Company Number: JP-JNJFOC-20120805329

PATIENT
  Age: 29 Year
  Sex: Female

DRUGS (5)
  1. TOPIRAMATE [Suspect]
     Indication: EPILEPSY
     Route: 048
  2. SODIUM VALPROATE [Suspect]
     Indication: EPILEPSY
     Route: 065
  3. CARBAMAZEPINE [Suspect]
     Indication: EPILEPSY
     Route: 065
  4. CLOBAZAM [Suspect]
     Indication: EPILEPSY
     Route: 065
  5. LAMOTRIGINE [Suspect]
     Indication: EPILEPSY
     Route: 065

REACTIONS (2)
  - Osteomalacia [Unknown]
  - Drug ineffective [Unknown]
